FAERS Safety Report 25329116 (Version 2)
Quarter: 2025Q2

REPORT INFORMATION
  Report Type: Report from Study
  Country: US (occurrence: US)
  Receive Date: 20250519
  Receipt Date: 20250528
  Transmission Date: 20250717
  Serious: No
  Sender: ABBVIE
  Company Number: US-ABBVIE-6272338

PATIENT
  Age: 77 Year
  Sex: Female

DRUGS (1)
  1. VYALEV [Suspect]
     Active Substance: FOSCARBIDOPA\FOSLEVODOPA
     Indication: Parkinson^s disease
     Route: 058
     Dates: start: 20250505, end: 20250514

REACTIONS (11)
  - Hypophagia [Not Recovered/Not Resolved]
  - Fall [Recovered/Resolved]
  - Skin abrasion [Unknown]
  - Musculoskeletal disorder [Unknown]
  - Balance disorder [Unknown]
  - Fall [Recovered/Resolved]
  - Mobility decreased [Unknown]
  - Infusion site erythema [Unknown]
  - Infusion site pain [Unknown]
  - Gait inability [Not Recovered/Not Resolved]
  - Device delivery system issue [Not Recovered/Not Resolved]

NARRATIVE: CASE EVENT DATE: 20250501
